FAERS Safety Report 7585175-8 (Version None)
Quarter: 2011Q3

REPORT INFORMATION
  Report Type: 
  Country: None (occurrence: None)
  Receive Date: 20110701
  Receipt Date: 20110624
  Transmission Date: 20111222
  Serious: Yes (Hospitalization, Other)
  Sender: FDA-Public Use
  Company Number: US-BIOGENIDEC-2011BI022101

PATIENT
  Age: 51 Year
  Sex: Male

DRUGS (2)
  1. AVONEX [Suspect]
     Indication: MULTIPLE SCLEROSIS
     Route: 030
     Dates: start: 20010824, end: 20090101
  2. AVONEX [Suspect]
     Route: 030
     Dates: start: 20090101

REACTIONS (5)
  - OROPHARYNGEAL PAIN [None]
  - CYSTITIS RADIATION [None]
  - FATIGUE [None]
  - THROAT CANCER [None]
  - MULTIPLE SCLEROSIS RELAPSE [None]
